FAERS Safety Report 6762551-4 (Version None)
Quarter: 2010Q2

REPORT INFORMATION
  Report Type: 
  Country: None (occurrence: None)
  Receive Date: 20100609
  Receipt Date: 20100528
  Transmission Date: 20101027
  Serious: Yes (Other)
  Sender: FDA-Public Use
  Company Number: JP-PFIZER INC-2010066081

PATIENT
  Age: 84 Year
  Sex: Female

DRUGS (4)
  1. GABAPEN [Suspect]
     Dosage: 900 MG, PER DAY
     Dates: start: 20100514, end: 20100519
  2. MYONAL [Concomitant]
  3. PREDONINE [Concomitant]
  4. LOXONIN [Concomitant]

REACTIONS (4)
  - ALANINE AMINOTRANSFERASE INCREASED [None]
  - BLOOD ALKALINE PHOSPHATASE INCREASED [None]
  - GAMMA-GLUTAMYLTRANSFERASE INCREASED [None]
  - LIVER DISORDER [None]
